FAERS Safety Report 5103596-X (Version None)
Quarter: 2006Q3

REPORT INFORMATION
  Report Type: 
  Country: None (occurrence: None)
  Receive Date: 20060908
  Receipt Date: 20060908
  Transmission Date: 20061208
  Serious: No
  Sender: FDA-Public Use
  Company Number: None

PATIENT

DRUGS (1)
  1. BUPIVACAINE [Suspect]
     Indication: CAESAREAN SECTION

REACTIONS (1)
  - DRUG INEFFECTIVE [None]
